FAERS Safety Report 24110769 (Version 1)
Quarter: 2024Q3

REPORT INFORMATION
  Report Type: Spontaneous
  Country: IT (occurrence: IT)
  Receive Date: 20240718
  Receipt Date: 20240718
  Transmission Date: 20241017
  Serious: Yes (Other)
  Sender: PFIZER
  Company Number: IT-PFIZER INC-0005498401PHAMED

PATIENT
  Age: 9 Year
  Sex: Female

DRUGS (3)
  1. METHYLPREDNISOLONE SODIUM SUCCINATE [Suspect]
     Active Substance: METHYLPREDNISOLONE SODIUM SUCCINATE
     Indication: Nephrotic syndrome
     Dosage: 700.0 MG ((20 MG/KG ADMINISTERED IN 2H)
     Route: 042
  2. PREDNISONE [Concomitant]
     Active Substance: PREDNISONE
     Indication: Nephrotic syndrome
     Dosage: 70 MG, DAILY (60 MG/M2, DAILY)
     Route: 048
  3. SPIRONOLACTONE [Concomitant]
     Active Substance: SPIRONOLACTONE
     Indication: Nephrotic syndrome
     Dosage: 400 MG, DAILY

REACTIONS (3)
  - Generalised tonic-clonic seizure [Recovered/Resolved]
  - Blindness transient [Recovered/Resolved]
  - Hypertension [Recovered/Resolved]
